FAERS Safety Report 4478054-6 (Version None)
Quarter: 2004Q3

REPORT INFORMATION
  Report Type: 
  Country: None (occurrence: None)
  Receive Date: 20040923
  Receipt Date: 20040802
  Transmission Date: 20050211
  Serious: No
  Sender: FDA-Public Use
  Company Number: USA040874344

PATIENT
  Age: 75 Year
  Sex: Female

DRUGS (11)
  1. FORTEO [Suspect]
     Indication: OSTEOPOROSIS
     Dates: start: 20040730
  2. BENADRYL [Concomitant]
  3. DIOVAN [Concomitant]
  4. CALCIUM WITH VITAMIN D [Concomitant]
  5. MULTI-VITAMIN [Concomitant]
  6. FLEXERIL [Concomitant]
  7. ASPIRIN [Concomitant]
  8. ASPIRIN [Concomitant]
  9. SINGULAIR (MONTELUKAST) [Concomitant]
  10. ZOCOR [Concomitant]
  11. NAPROXEN SODIUM [Concomitant]

REACTIONS (2)
  - INJECTION SITE HAEMORRHAGE [None]
  - RHINORRHOEA [None]
